FAERS Safety Report 6580735-5 (Version None)
Quarter: 2010Q1

REPORT INFORMATION
  Report Type: 
  Country: None (occurrence: None)
  Receive Date: 20100212
  Receipt Date: 20100204
  Transmission Date: 20100710
  Serious: Yes (Hospitalization)
  Sender: FDA-Public Use
  Company Number: ES-JNJFOC-20100103401

PATIENT
  Age: 42 Year
  Sex: Female
  Weight: 83 kg

DRUGS (3)
  1. REMICADE [Suspect]
     Indication: PSORIASIS
     Dosage: 2 INFUSIONS.
     Route: 042
  2. REMICADE [Suspect]
     Dosage: 2 INFUSIONS.
     Route: 042
  3. NOCTAMID [Concomitant]
     Indication: DEPRESSION

REACTIONS (2)
  - INFUSION RELATED REACTION [None]
  - SERUM SICKNESS [None]
